FAERS Safety Report 17371318 (Version 1)
Quarter: 2020Q1

REPORT INFORMATION
  Report Type: Spontaneous
  Country: IN (occurrence: IN)
  Receive Date: 20200205
  Receipt Date: 20200205
  Transmission Date: 20200409
  Serious: Yes (Hospitalization, Other)
  Sender: FDA-Public Use
  Company Number: IN-ACCORD-171790

PATIENT
  Age: 70 Year
  Sex: Female

DRUGS (1)
  1. METHOTREXATE. [Suspect]
     Active Substance: METHOTREXATE
     Indication: RHEUMATOID ARTHRITIS
     Dosage: ACCIDENTAL DAILY CONSUMPTION OF METHOTREXATE (MTX) FOR 15 DAYS

REACTIONS (7)
  - Liver function test abnormal [Recovering/Resolving]
  - Renal function test abnormal [Recovering/Resolving]
  - Pancytopenia [Recovering/Resolving]
  - Accidental overdose [Unknown]
  - Aphthous ulcer [Recovering/Resolving]
  - Arthralgia [Recovering/Resolving]
  - Fibrosis [Recovering/Resolving]
